FAERS Safety Report 18153592 (Version 2)
Quarter: 2020Q3

REPORT INFORMATION
  Report Type: Spontaneous
  Country: US (occurrence: US)
  Receive Date: 20200816
  Receipt Date: 20200914
  Transmission Date: 20201103
  Serious: No
  Sender: FDA-Public Use
  Company Number: US-ASTRAZENECA-2020SE96480

PATIENT
  Age: 25143 Day
  Sex: Female
  Weight: 90.7 kg

DRUGS (1)
  1. BYDUREON BCISE [Suspect]
     Active Substance: EXENATIDE
     Indication: TYPE 2 DIABETES MELLITUS
     Route: 058
     Dates: start: 20200718

REACTIONS (9)
  - Injection site injury [Recovered/Resolved]
  - Injection site pain [Recovered/Resolved]
  - Injection site irritation [Not Recovered/Not Resolved]
  - Contusion [Recovering/Resolving]
  - Incorrect dose administered [Unknown]
  - Device leakage [Unknown]
  - Injection site pruritus [Recovered/Resolved]
  - Injection site mass [Recovered/Resolved]
  - Device issue [Unknown]

NARRATIVE: CASE EVENT DATE: 20200718
